FAERS Safety Report 19370879 (Version 3)
Quarter: 2021Q4

REPORT INFORMATION
  Report Type: Report from Study
  Country: US (occurrence: None)
  Receive Date: 20210604
  Receipt Date: 20211123
  Transmission Date: 20220303
  Serious: Yes (Hospitalization)
  Sender: FDA-Public Use
  Company Number: US-ROCHE-2803284

PATIENT
  Age: 69 Year
  Sex: Male
  Weight: 80.9 kg

DRUGS (12)
  1. COBIMETINIB [Suspect]
     Active Substance: COBIMETINIB
     Indication: Plasma cell myeloma
     Dosage: THE LAST DOSE FOR COBIMETINIB PRIOR TO THE EVENT WAS ON 12/MAR/2021
     Route: 065
     Dates: start: 20210218, end: 20210524
  2. DEXAMETHASONE [Suspect]
     Active Substance: DEXAMETHASONE
     Indication: Plasma cell myeloma
     Route: 065
     Dates: start: 20210218, end: 20210518
  3. POMALIDOMIDE [Suspect]
     Active Substance: POMALIDOMIDE
     Indication: Plasma cell myeloma
     Dosage: THE LAST DOSE OF STUDY TREATMENT PRIOR TO THE EVENT WAS ADMINISTERED ON 12/MAY/2021
     Route: 048
     Dates: start: 20210504, end: 20210524
  4. IXAZOMIB [Suspect]
     Active Substance: IXAZOMIB
     Indication: Plasma cell myeloma
     Dosage: THE LAST DOSE OF STUDY TREATMENT PRIOR TO THE EVENT WAS ADMINISTERED ON 12/MAY/2021
     Route: 048
     Dates: start: 20210504, end: 20210518
  5. OMEPRAZOLE [Concomitant]
     Active Substance: OMEPRAZOLE
  6. VITAMIN D3 [Concomitant]
     Active Substance: CHOLECALCIFEROL
  7. ZOLEDRONIC ACID [Concomitant]
     Active Substance: ZOLEDRONIC ACID
  8. ACYCLOVIR [Concomitant]
     Active Substance: ACYCLOVIR
  9. KLOR-CON M20 [Concomitant]
     Active Substance: POTASSIUM CHLORIDE
  10. ELIQUIS [Concomitant]
     Active Substance: APIXABAN
  11. LEVOTHYROXINE [Concomitant]
     Active Substance: LEVOTHYROXINE
  12. CYANOCOBALAMIN [Concomitant]
     Active Substance: CYANOCOBALAMIN

REACTIONS (5)
  - Anaemia [Recovered/Resolved]
  - Serous retinopathy [Recovered/Resolved]
  - Platelet count decreased [Unknown]
  - Neutrophil count decreased [Unknown]
  - Anaemia [Unknown]

NARRATIVE: CASE EVENT DATE: 20210318
